FAERS Safety Report 4389851-X (Version None)
Quarter: 2004Q2

REPORT INFORMATION
  Report Type: 
  Country: None (occurrence: None)
  Receive Date: 20040628
  Receipt Date: 20040610
  Transmission Date: 20050107
  Serious: Yes (Other)
  Sender: FDA-Public Use
  Company Number: 24354

PATIENT
  Age: 70 Year
  Sex: Female

DRUGS (1)
  1. ALDARA [Suspect]
     Indication: MYCOSIS FUNGOIDES
     Dosage: 1 IN 1 DAY (S), TOPICAL
     Route: 061
     Dates: start: 20040101, end: 20040101

REACTIONS (5)
  - APPLICATION SITE REACTION [None]
  - LOCALISED SKIN REACTION [None]
  - MYALGIA [None]
  - PULMONARY OEDEMA [None]
  - PYREXIA [None]
